FAERS Safety Report 7364790-0 (Version None)
Quarter: 2011Q1

REPORT INFORMATION
  Report Type: 
  Country: None (occurrence: None)
  Receive Date: 20110321
  Receipt Date: 20110308
  Transmission Date: 20110831
  Serious: Yes (Other)
  Sender: FDA-Public Use
  Company Number: PHFR2011GB01813

PATIENT
  Sex: Female

DRUGS (2)
  1. WARFARIN SODIUM [Concomitant]
  2. FEMARA [Suspect]
     Indication: BREAST CANCER

REACTIONS (10)
  - CARDIAC FAILURE [None]
  - OEDEMA PERIPHERAL [None]
  - NIGHT SWEATS [None]
  - IRRITABILITY [None]
  - LIVER DISORDER [None]
  - ARTHRALGIA [None]
  - DIABETES MELLITUS [None]
  - AMNESIA [None]
  - MUSCULOSKELETAL PAIN [None]
  - RENAL DISORDER [None]
